FAERS Safety Report 10344075 (Version 6)
Quarter: 2016Q4

REPORT INFORMATION
  Report Type: Report from Study
  Country: CA (occurrence: CA)
  Receive Date: 20140728
  Receipt Date: 20161103
  Transmission Date: 20170206
  Serious: Yes (Other)
  Sender: FDA-Public Use
  Company Number: CA-ROCHE-1335553

PATIENT
  Age: 56 Year
  Sex: Female
  Weight: 127.9 kg

DRUGS (5)
  1. ACTEMRA [Suspect]
     Active Substance: TOCILIZUMAB
     Indication: RHEUMATOID ARTHRITIS
     Route: 042
     Dates: start: 20121010, end: 20140717
  2. ACTEMRA [Suspect]
     Active Substance: TOCILIZUMAB
     Indication: RHEUMATOID ARTHRITIS
     Dosage: UNKNOWN DOSE
     Route: 058
     Dates: start: 20140807
  3. METHOTREXATE. [Concomitant]
     Active Substance: METHOTREXATE
  4. PARIET [Concomitant]
     Active Substance: RABEPRAZOLE SODIUM
  5. INDOCID [Concomitant]
     Active Substance: INDOMETHACIN

REACTIONS (13)
  - Stress [Unknown]
  - Pyrexia [Unknown]
  - Oral infection [Unknown]
  - Ear infection [Recovered/Resolved]
  - Aphthous ulcer [Unknown]
  - Rheumatoid arthritis [Unknown]
  - Sinusitis [Recovered/Resolved]
  - Peripheral swelling [Unknown]
  - Arthralgia [Unknown]
  - Tongue ulceration [Recovered/Resolved]
  - Herpes zoster [Unknown]
  - Drug ineffective [Unknown]
  - Hypertension [Unknown]

NARRATIVE: CASE EVENT DATE: 2014
